FAERS Safety Report 12256953 (Version 2)
Quarter: 2020Q3

REPORT INFORMATION
  Report Type: Report from Study
  Country: AT (occurrence: AT)
  Receive Date: 20160412
  Receipt Date: 20171122
  Transmission Date: 20201105
  Serious: Yes (Life-Threatening, Hospitalization)
  Sender: FDA-Public Use
  Company Number: AT-JNJFOC-20160404724

PATIENT
  Age: 73 Year
  Sex: Female
  Weight: 63 kg

DRUGS (21)
  1. XARELTO [Concomitant]
     Active Substance: RIVAROXABAN
     Dosage: 1?0?0
  2. MEXALEN [Concomitant]
     Active Substance: ACETAMINOPHEN
     Dosage: 1?1?1
  3. SIFROL [Concomitant]
     Active Substance: PRAMIPEXOLE
     Dosage: 0?3
  4. LASIX [Concomitant]
     Active Substance: FUROSEMIDE
     Dosage: 1?1/2?0
  5. ACEMIN [LISINOPRIL] [Concomitant]
     Active Substance: LISINOPRIL
     Dosage: 1/2?0?0
  6. PASPERTIN [METOCLOPRAMIDE HYDROCHLORIDE] [Concomitant]
     Active Substance: METOCLOPRAMIDE HYDROCHLORIDE
     Dosage: ^BIS 3 X 1^
  7. CALCIUM AND VIT D [Concomitant]
     Active Substance: CALCIUM\VITAMIN D
     Dosage: 1?0?1
  8. DARATUMUMAB [Suspect]
     Active Substance: DARATUMUMAB
     Route: 042
  9. OVESTIN [Concomitant]
     Active Substance: ESTRIOL
     Dosage: ^1 X 1 TGL^
  10. FENTANYL. [Concomitant]
     Active Substance: FENTANYL
     Dosage: ^ALLE 3 TAGE^
  11. RETACRIT [Concomitant]
     Active Substance: EPOETIN ALFA-EPBX
     Dosage: 30, 000 E
  12. ZOFRAN [Concomitant]
     Active Substance: ONDANSETRON HYDROCHLORIDE
     Dosage: ^BIS 3 X 1^
  13. DARATUMUMAB [Suspect]
     Active Substance: DARATUMUMAB
     Indication: PLASMA CELL MYELOMA
     Route: 042
     Dates: start: 20160317, end: 20160402
  14. PANTOPRAZOL [Concomitant]
     Active Substance: PANTOPRAZOLE SODIUM
     Dosage: 1?0?0
  15. SPIROBENE [Concomitant]
     Active Substance: SPIRONOLACTONE
     Dosage: 1/2?0?0
  16. DIGIMERCK [Concomitant]
     Active Substance: DIGITOXIN
     Dosage: 1?0?0
  17. LAEVOLAC [Concomitant]
     Active Substance: LACTULOSE
     Dosage: ^2 EL TGL^
  18. VALACICLOVIR [Concomitant]
     Active Substance: VALACYCLOVIR HYDROCHLORIDE
     Dosage: 1/2?0?1/2
  19. BONDRONAT [Concomitant]
     Active Substance: IBANDRONATE SODIUM
  20. TRITTICO [Concomitant]
     Active Substance: TRAZODONE HYDROCHLORIDE
     Dosage: 0?0?0?2/3
  21. UROSIN [Concomitant]
     Active Substance: ALLOPURINOL
     Dosage: 0?0?1

REACTIONS (2)
  - Pneumonitis [Recovering/Resolving]
  - Therapy non-responder [Unknown]

NARRATIVE: CASE EVENT DATE: 20160402
